FAERS Safety Report 9196384 (Version 1)
Quarter: 2013Q1

REPORT INFORMATION
  Report Type: Spontaneous
  Country: JP (occurrence: JP)
  Receive Date: 20130328
  Receipt Date: 20130328
  Transmission Date: 20140127
  Serious: Yes (Other)
  Sender: FDA-Public Use
  Company Number: JP-MYLANLABS-2013S1006019

PATIENT
  Age: 7 Decade
  Sex: Female

DRUGS (2)
  1. CARBOPLATIN [Suspect]
     Indication: OVARIAN CANCER
     Route: 041
  2. PACLITAXEL [Suspect]
     Indication: OVARIAN CANCER
     Route: 041

REACTIONS (2)
  - Rash [Recovering/Resolving]
  - Pigmentation disorder [Recovering/Resolving]
